FAERS Safety Report 18217996 (Version 1)
Quarter: 2020Q3

REPORT INFORMATION
  Report Type: Spontaneous
  Country: FI (occurrence: FI)
  Receive Date: 20200901
  Receipt Date: 20200901
  Transmission Date: 20201103
  Serious: Yes (Other)
  Sender: FDA-Public Use
  Company Number: FI-ROCHE-2667193

PATIENT
  Sex: Female

DRUGS (3)
  1. RIVATRIL [Suspect]
     Active Substance: CLONAZEPAM
     Indication: PRODUCT USED FOR UNKNOWN INDICATION
     Route: 065
  2. PHENYTOIN. [Suspect]
     Active Substance: PHENYTOIN
     Indication: PRODUCT USED FOR UNKNOWN INDICATION
     Route: 065
  3. OVANONE [Suspect]
     Active Substance: ETHINYL ESTRADIOL\LYNESTRENOL
     Indication: CONTRACEPTION
     Route: 065

REACTIONS (3)
  - Pregnancy on oral contraceptive [Unknown]
  - Therapeutic product effect decreased [Unknown]
  - Drug interaction [Unknown]
